FAERS Safety Report 5270045-0 (Version None)
Quarter: 2007Q1

REPORT INFORMATION
  Report Type: 
  Country: None (occurrence: None)
  Receive Date: 20061213
  Receipt Date: 20030729
  Transmission Date: 20070707
  Serious: Yes (Other)
  Sender: FDA-Public Use
  Company Number: 2003UW09605

PATIENT

DRUGS (2)
  1. IRESSA [Suspect]
  2. DIGOXIN [Suspect]

REACTIONS (3)
  - DRUG INTERACTION [None]
  - RENAL IMPAIRMENT [None]
  - THERAPEUTIC AGENT TOXICITY [None]
